FAERS Safety Report 9624189 (Version 2)
Quarter: 2014Q2

REPORT INFORMATION
  Report Type: Spontaneous
  Country: US (occurrence: US)
  Receive Date: 20131015
  Receipt Date: 20140609
  Transmission Date: 20141212
  Serious: Yes (Other)
  Sender: FDA-Public Use
  Company Number: US-PFIZER INC-2013292221

PATIENT
  Age: 66 Year
  Sex: Female
  Weight: 71.66 kg

DRUGS (4)
  1. LIPITOR [Suspect]
     Indication: LOW DENSITY LIPOPROTEIN INCREASED
     Dosage: 20 MG, UNK
     Route: 048
     Dates: start: 1999, end: 200504
  2. LIPITOR [Suspect]
     Indication: CARDIOVASCULAR EVENT PROPHYLAXIS
     Dosage: 80 MG, DAILY
     Dates: start: 200505, end: 200908
  3. LIPITOR [Suspect]
     Dosage: 40 MG, UNK
     Dates: start: 2009, end: 201012
  4. LIPITOR [Suspect]
     Dosage: UNK
     Dates: start: 201105, end: 201203

REACTIONS (5)
  - Type 2 diabetes mellitus [Not Recovered/Not Resolved]
  - Renal failure chronic [Not Recovered/Not Resolved]
  - Glaucoma [Not Recovered/Not Resolved]
  - Cataract [Unknown]
  - Neuropathy peripheral [Not Recovered/Not Resolved]
